FAERS Safety Report 9392980 (Version 4)
Quarter: 2015Q2

REPORT INFORMATION
  Report Type: Report from Study
  Country: US (occurrence: US)
  Receive Date: 20130710
  Receipt Date: 20150612
  Transmission Date: 20150821
  Serious: Yes (Life-Threatening, Hospitalization, Other)
  Sender: FDA-Public Use
  Company Number: US-ASTELLAS-2013EU003313

PATIENT
  Age: 59 Year
  Sex: Female

DRUGS (66)
  1. LEVOFLOXACIN. [Concomitant]
     Active Substance: LEVOFLOXACIN
     Indication: ANTIBIOTIC PROPHYLAXIS
     Dosage: 250-500 MG, ONCE DAILY
     Route: 048
     Dates: start: 20130320
  2. PANTOPRAZOLE SODIUM [Concomitant]
     Indication: GASTROOESOPHAGEAL REFLUX PROPHYLAXIS
     Route: 048
     Dates: start: 20130320
  3. VALACYCLOVIR HYDROCHLORIDE. [Concomitant]
     Active Substance: VALACYCLOVIR HYDROCHLORIDE
     Indication: ANTIVIRAL PROPHYLAXIS
     Route: 048
     Dates: start: 20130325
  4. MYCOPHENOLATE MOFETIL. [Concomitant]
     Active Substance: MYCOPHENOLATE MOFETIL
     Indication: PROPHYLAXIS AGAINST GRAFT VERSUS HOST DISEASE
     Route: 042
     Dates: start: 20130329
  5. METOPROLOL TARTRATE. [Concomitant]
     Active Substance: METOPROLOL TARTRATE
     Indication: HYPERTENSION
     Dosage: 5-10 MG, EVERY 6 HOURS
     Route: 042
     Dates: start: 20130328
  6. ONDANSETRON [Concomitant]
     Active Substance: ONDANSETRON
     Indication: NAUSEA
     Dosage: 4-8 MG, AS NEEDED
     Route: 065
     Dates: start: 20130318
  7. LIDOCAINE. [Concomitant]
     Active Substance: LIDOCAINE
     Indication: LOCAL ANAESTHESIA
     Dosage: 0.5-2.0 ML, AS NEEDED
     Route: 058
     Dates: start: 20130318, end: 20130318
  8. DEXTROSE. [Concomitant]
     Active Substance: DEXTROSE
     Route: 048
     Dates: start: 20130319
  9. MAALOX ANTACID [Concomitant]
     Active Substance: ALUMINUM HYDROXIDE\DIMETHICONE\MAGNESIUM HYDROXIDE
     Indication: PROPHYLAXIS
     Dosage: 15-30 ML, AS NEEDED
     Route: 048
     Dates: start: 20130319
  10. SODIUM PHOSPHATE [Concomitant]
     Active Substance: SODIUM PHOSPHATE
     Indication: HYPOPHOSPHATAEMIA
     Dosage: 15-30 MMOL, AS NEEDED
     Route: 042
     Dates: start: 20130329
  11. PROGRAF [Suspect]
     Active Substance: TACROLIMUS\TACROLIMUS ANHYDROUS
     Indication: PROPHYLAXIS AGAINST GRAFT VERSUS HOST DISEASE
     Dosage: 0.7 MG, ONCE DAILY
     Route: 042
     Dates: start: 20130329
  12. ACETAMINOPHEN. [Concomitant]
     Active Substance: ACETAMINOPHEN
     Indication: PREMEDICATION
     Route: 042
     Dates: start: 20130228
  13. DIPHENHYDRAMINE [Concomitant]
     Active Substance: DIPHENHYDRAMINE
     Indication: PREMEDICATION
     Dosage: 25-50 ML, AS NEEDED
     Route: 042
     Dates: start: 20130228
  14. MELPHALAN [Concomitant]
     Active Substance: MELPHALAN
     Indication: BONE MARROW CONDITIONING REGIMEN
     Route: 042
     Dates: start: 20130320, end: 20130320
  15. PRAVASTATIN SODIUM. [Concomitant]
     Active Substance: PRAVASTATIN SODIUM
     Indication: HYPERLIPIDAEMIA
     Route: 048
     Dates: start: 2011
  16. HYDRALAZINE [Concomitant]
     Active Substance: HYDRALAZINE HYDROCHLORIDE
     Indication: HYPERTENSION
     Route: 048
     Dates: start: 2011
  17. CEFEPIME [Concomitant]
     Active Substance: CEFEPIME\CEFEPIME HYDROCHLORIDE
     Indication: ANTIBIOTIC PROPHYLAXIS
     Route: 042
     Dates: start: 20130324
  18. PHYTONADIONE. [Concomitant]
     Active Substance: PHYTONADIONE
     Indication: HAEMORRHAGE PROPHYLAXIS
     Route: 048
     Dates: start: 20130325
  19. WHITE PETROLATUM [Concomitant]
     Active Substance: PETROLATUM
     Indication: PROPHYLAXIS
     Dosage: 1 APPLICATION, AS NEEDED
     Route: 061
     Dates: start: 20130319
  20. SODIUM CHLORIDE. [Concomitant]
     Active Substance: SODIUM CHLORIDE
     Indication: FLUID REPLACEMENT
     Dosage: 1000 ML, ONCE DAILY CONTINUES
     Route: 042
     Dates: start: 20130319
  21. PROMETHAZINE [Concomitant]
     Active Substance: PROMETHAZINE\PROMETHAZINE HYDROCHLORIDE
     Indication: NAUSEA
     Route: 042
     Dates: start: 20130319
  22. DEXTROSE. [Concomitant]
     Active Substance: DEXTROSE
     Dosage: 250-1000 ML, AS NEEDED
     Route: 042
     Dates: start: 20130326
  23. MYCAMINE [Suspect]
     Active Substance: MICAFUNGIN SODIUM
     Indication: ANTIFUNGAL PROPHYLAXIS
     Route: 042
     Dates: start: 20130319
  24. FUROSEMIDE. [Concomitant]
     Active Substance: FUROSEMIDE
     Indication: FLUID REPLACEMENT
     Dosage: 20-40 MG, AS NEEDED
     Route: 042
     Dates: start: 20130320
  25. RALOXIFENE [Concomitant]
     Active Substance: RALOXIFENE
     Indication: OSTEOARTHRITIS
     Route: 048
     Dates: start: 2011
  26. LEVOTHYROXINE [Concomitant]
     Active Substance: LEVOTHYROXINE
     Indication: HYPOTHYROIDISM
     Route: 048
     Dates: start: 2011
  27. INSULIN GLARGINE [Concomitant]
     Active Substance: INSULIN GLARGINE
     Indication: DIABETES MELLITUS
     Dosage: 30 U, ONCE DAILY
     Route: 058
     Dates: start: 2011
  28. GUAIFENESIN. [Concomitant]
     Active Substance: GUAIFENESIN
     Indication: COUGH
     Route: 048
     Dates: start: 20130323
  29. INSULIN REGULAR                    /01223201/ [Concomitant]
     Active Substance: INSULIN BEEF
     Indication: DIABETES MELLITUS
     Dosage: SLIDING SCALE U, AS NEEDED
     Route: 058
     Dates: start: 20130324
  30. MAGNESIUM SULFATE. [Concomitant]
     Active Substance: MAGNESIUM SULFATE
     Indication: PROPHYLAXIS
     Dosage: 4-16 MEQ, AS NEEDED
     Route: 042
     Dates: start: 20130319
  31. DOCUSATE SODIUM W/SENNOSIDE A+B [Concomitant]
     Active Substance: DOCUSATE SODIUM\SENNOSIDES A AND B
     Indication: CONSTIPATION PROPHYLAXIS
     Dosage: 1-2 TABLETS, AS NEEDED
     Route: 048
     Dates: start: 20130319
  32. SODIUM BICARBONATE. [Concomitant]
     Active Substance: SODIUM BICARBONATE
     Indication: METABOLIC ACIDOSIS
     Dosage: 50-150 MEQ, AS NEEDED
     Route: 042
     Dates: start: 20130319
  33. POTASSIUM CHLORIDE. [Concomitant]
     Active Substance: POTASSIUM CHLORIDE
     Indication: HYPOKALAEMIA
     Dosage: 10-40 MEQ, AS NEEDED
     Route: 042
     Dates: start: 20130319
  34. LOPERAMIDE [Concomitant]
     Active Substance: LOPERAMIDE
     Indication: DIARRHOEA
     Dosage: 2-4 MG, AS NEEDED
     Route: 048
     Dates: start: 20130319
  35. PANTOPRAZOLE SODIUM [Concomitant]
     Indication: GASTROOESOPHAGEAL REFLUX DISEASE
     Route: 042
     Dates: start: 20130328, end: 20130330
  36. HYDRALAZINE [Concomitant]
     Active Substance: HYDRALAZINE HYDROCHLORIDE
     Dosage: 10-20 MG, AS NEEDED
     Route: 042
     Dates: start: 20130321
  37. ZINC OXIDE. [Concomitant]
     Active Substance: ZINC OXIDE
     Indication: PROPHYLAXIS
     Dosage: 1 APPLICATION, AS NEEDED
     Route: 061
     Dates: start: 20130319
  38. FIDAXOMICIN [Suspect]
     Active Substance: FIDAXOMICIN
     Indication: PROPHYLAXIS
     Route: 048
     Dates: start: 20130321, end: 20130327
  39. HYDROCORTISONE. [Concomitant]
     Active Substance: HYDROCORTISONE
     Indication: PREMEDICATION
     Route: 042
     Dates: start: 20130314
  40. PROPOFOL. [Concomitant]
     Active Substance: PROPOFOL
     Indication: SEDATION
     Route: 042
     Dates: start: 20130318, end: 20130318
  41. VALSARTAN. [Concomitant]
     Active Substance: VALSARTAN
     Indication: HYPERTENSION
     Route: 048
     Dates: start: 2011
  42. INSULIN LISPRO [Concomitant]
     Active Substance: INSULIN LISPRO
     Indication: DIABETES MELLITUS
     Dosage: SLIDING SCALE U, AS NEEDED
     Route: 058
     Dates: start: 20130320
  43. CLOPIDOGREL BISULFATE. [Concomitant]
     Active Substance: CLOPIDOGREL BISULFATE
     Indication: CORONARY ARTERY DISEASE
     Route: 048
     Dates: start: 2011
  44. ACYCLOVIR SODIUM. [Concomitant]
     Active Substance: ACYCLOVIR SODIUM
     Indication: ANTIFUNGAL PROPHYLAXIS
     Dosage: 475-650 MG, ONCE DAILY
     Route: 042
     Dates: start: 20130328
  45. KEPPRA [Concomitant]
     Active Substance: LEVETIRACETAM
     Indication: PRODUCT USED FOR UNKNOWN INDICATION
     Route: 065
  46. PIPERACILLIN/TAZOBACTAM [Concomitant]
     Active Substance: PIPERACILLIN SODIUM\TAZOBACTAM SODIUM
     Indication: ANTIBIOTIC PROPHYLAXIS
     Dosage: 3.375 G, EVERY 6 HOURS
     Route: 042
     Dates: start: 20130329
  47. LEVETIRACETAM. [Concomitant]
     Active Substance: LEVETIRACETAM
     Indication: MENTAL STATUS CHANGES
     Dosage: 500-750 MG, EVERY 12 HOURS
     Route: 042
     Dates: start: 20130328, end: 20130411
  48. MESNA. [Concomitant]
     Active Substance: MESNA
     Indication: MENTAL STATUS CHANGES
     Dosage: 712 MG, Q4H
     Route: 042
     Dates: start: 20130329, end: 20130329
  49. MINOCYCLINE [Concomitant]
     Active Substance: MINOCYCLINE\MINOCYCLINE HYDROCHLORIDE
     Indication: ANTIBIOTIC PROPHYLAXIS
     Route: 048
     Dates: start: 20130320
  50. FLUOXETINE [Concomitant]
     Active Substance: FLUOXETINE\FLUOXETINE HYDROCHLORIDE
     Indication: DEPRESSION
     Route: 048
     Dates: start: 2011
  51. VANCOMYCIN [Concomitant]
     Active Substance: VANCOMYCIN
     Indication: ANTIBIOTIC PROPHYLAXIS
     Route: 042
     Dates: start: 20130324
  52. CYCLOPHOSPHAMIDE. [Concomitant]
     Active Substance: CYCLOPHOSPHAMIDE
     Indication: BONE MARROW CONDITIONING REGIMEN
     Route: 042
     Dates: start: 20130329, end: 20130330
  53. VORICONAZOLE. [Concomitant]
     Active Substance: VORICONAZOLE
     Indication: ANTIFUNGAL PROPHYLAXIS
     Route: 042
     Dates: start: 20130329
  54. CLONIDINE. [Concomitant]
     Active Substance: CLONIDINE
     Indication: HYPERTENSION
     Dosage: 0.1-0.2 MG, ONCE WEEKLY
     Route: 062
     Dates: start: 20130329
  55. ARTIFICIAL TEARS                   /00445101/ [Concomitant]
     Indication: PROPHYLAXIS
     Dosage: 1 APPLICATION, AS NEEDED
     Route: 047
     Dates: start: 20130321
  56. OXYCODONE [Concomitant]
     Active Substance: OXYCODONE
     Indication: PAIN
     Route: 048
     Dates: start: 20130319
  57. SODIUM BICARBONATE W/SODIUM CHLORIDE [Concomitant]
     Indication: PROPHYLAXIS
     Route: 048
     Dates: start: 20130319
  58. ASPIRIN. [Concomitant]
     Active Substance: ASPIRIN
     Indication: CORONARY ARTERY DISEASE
     Route: 048
     Dates: start: 20121106
  59. ZOLPIDEM [Concomitant]
     Active Substance: ZOLPIDEM\ZOLPIDEM TARTRATE
     Indication: INSOMNIA
     Route: 048
     Dates: start: 20130319
  60. DEXAMETHASONE SODIUM PHOSPHATE. [Concomitant]
     Active Substance: DEXAMETHASONE SODIUM PHOSPHATE
     Indication: PREMEDICATION
     Dosage: 4-10 MG, AS NEEDED
     Route: 042
     Dates: start: 20130320
  61. LEVOTHYROXINE [Concomitant]
     Active Substance: LEVOTHYROXINE
     Dosage: 100 MCG, QD
     Route: 042
     Dates: start: 20130328
  62. CARVEDILOL. [Concomitant]
     Active Substance: CARVEDILOL
     Indication: HYPERTENSION
     Route: 048
     Dates: start: 2011
  63. FLUDARABINE [Concomitant]
     Active Substance: FLUDARABINE PHOSPHATE
     Indication: BONE MARROW CONDITIONING REGIMEN
     Route: 042
     Dates: start: 20130320, end: 20130324
  64. CHLORHEXIDINE GLUCONATE. [Concomitant]
     Active Substance: CHLORHEXIDINE GLUCONATE
     Indication: PROPHYLAXIS
     Route: 048
     Dates: start: 20130319
  65. LORAZEPAM. [Concomitant]
     Active Substance: LORAZEPAM
     Indication: ANXIETY
     Route: 048
     Dates: start: 20130319
  66. DEXTROSE. [Concomitant]
     Active Substance: DEXTROSE
     Indication: HYPOGLYCAEMIA
     Route: 042
     Dates: start: 20130319

REACTIONS (1)
  - Respiratory failure [Recovered/Resolved]

NARRATIVE: CASE EVENT DATE: 20130329
